FAERS Safety Report 20213112 (Version 1)
Quarter: 2021Q4

REPORT INFORMATION
  Report Type: Spontaneous
  Country: US (occurrence: US)
  Receive Date: 20211221
  Receipt Date: 20211221
  Transmission Date: 20220304
  Serious: No
  Sender: FDA-Public Use
  Company Number: US-SANOFI-00894260

PATIENT

DRUGS (1)
  1. SELSUN BLUE MEDICATED [Suspect]
     Active Substance: SELENIUM SULFIDE

REACTIONS (3)
  - Pruritus [Unknown]
  - Hair disorder [Unknown]
  - Drug ineffective [Unknown]
